FAERS Safety Report 8054484-0 (Version None)
Quarter: 2012Q1

REPORT INFORMATION
  Report Type: 
  Country: None (occurrence: None)
  Receive Date: 20120118
  Receipt Date: 20120112
  Transmission Date: 20120608
  Serious: Yes (Hospitalization, Disabling)
  Sender: FDA-Public Use
  Company Number: US-MERCK-1107USA03832

PATIENT
  Age: 55 Year
  Sex: Female
  Weight: 49 kg

DRUGS (4)
  1. FOSAMAX [Suspect]
     Indication: OSTEOPOROSIS
     Route: 048
     Dates: start: 19970801, end: 20080701
  2. CALCIUM (UNSPECIFIED) [Concomitant]
     Route: 065
  3. FOSAMAX [Suspect]
     Route: 048
     Dates: start: 20070901, end: 20071101
  4. PREMPRO [Concomitant]
     Indication: OSTEOPOROSIS
     Route: 065
     Dates: start: 19970101, end: 20030101

REACTIONS (22)
  - OSTEONECROSIS OF JAW [None]
  - SUPRAVENTRICULAR EXTRASYSTOLES [None]
  - CYST [None]
  - NEPHROLITHIASIS [None]
  - HYPERTENSION [None]
  - ORAL TORUS [None]
  - BREAST MASS [None]
  - FATIGUE [None]
  - OSTEOPENIA [None]
  - GINGIVAL BLEEDING [None]
  - PANCREATIC CYST [None]
  - DENTAL CARIES [None]
  - EXOSTOSIS [None]
  - VITAMIN D DEFICIENCY [None]
  - ABDOMINAL PAIN [None]
  - ECZEMA [None]
  - TONSILLAR DISORDER [None]
  - POLYCYSTIC LIVER DISEASE [None]
  - MOUTH ULCERATION [None]
  - GINGIVAL DISORDER [None]
  - GASTROENTERITIS [None]
  - LYMPHADENOPATHY [None]
